FAERS Safety Report 5317022-9 (Version None)
Quarter: 2007Q2

REPORT INFORMATION
  Report Type: 
  Country: None (occurrence: None)
  Receive Date: 20070504
  Receipt Date: 20070424
  Transmission Date: 20071010
  Serious: Yes (Death)
  Sender: FDA-Public Use
  Company Number: IR-ROCHE-494709

PATIENT
  Age: 19 Year
  Sex: Female
  Weight: 35 kg

DRUGS (2)
  1. PEGASYS [Suspect]
     Indication: DRUG USE FOR UNKNOWN INDICATION
     Route: 065
     Dates: start: 20061020, end: 20061230
  2. RIBAVIRIN [Concomitant]
     Dates: start: 20061020, end: 20061230

REACTIONS (2)
  - CARDIAC DISORDER [None]
  - HEPATIC FAILURE [None]
